FAERS Safety Report 6243573-9 (Version None)
Quarter: 2009Q2

REPORT INFORMATION
  Report Type: 
  Country: None (occurrence: None)
  Receive Date: 20090624
  Receipt Date: 20090617
  Transmission Date: 20091009
  Serious: Yes (Hospitalization)
  Sender: FDA-Public Use
  Company Number: US-GILEAD-2008-0015428

PATIENT
  Sex: Female
  Weight: 64.468 kg

DRUGS (9)
  1. AMBRISENTAN [Suspect]
     Indication: PULMONARY HYPERTENSION
     Route: 048
     Dates: start: 20071026
  2. AMLODIPINE [Concomitant]
     Indication: HYPERTENSION
     Dates: start: 20070919
  3. LASIX [Concomitant]
     Indication: OEDEMA
     Dates: start: 20071101
  4. LASIX [Concomitant]
     Route: 048
  5. SPIRONOLACTONE [Concomitant]
     Indication: OEDEMA
     Dates: start: 20071101
  6. COUMADIN [Concomitant]
     Indication: ANTICOAGULANT THERAPY
     Dates: start: 20070601
  7. AMBIEN [Concomitant]
     Indication: INSOMNIA
     Dates: start: 20071025
  8. CELEXA [Concomitant]
     Indication: DEPRESSION
     Dates: start: 20071218
  9. POTASSIUM CHLORIDE [Concomitant]
     Dates: start: 20071101

REACTIONS (1)
  - RIGHT VENTRICULAR FAILURE [None]
